FAERS Safety Report 4998480-6 (Version None)
Quarter: 2006Q2

REPORT INFORMATION
  Report Type: 
  Country: None (occurrence: None)
  Receive Date: 20060508
  Receipt Date: 20060424
  Transmission Date: 20061013
  Serious: Yes (Other)
  Sender: FDA-Public Use
  Company Number: FABR-11486

PATIENT
  Age: 16 Year
  Sex: Male
  Weight: 39 kg

DRUGS (4)
  1. FABRAZYME [Suspect]
     Indication: FABRY'S DISEASE
     Dosage: 40 MG Q2WKS IV
     Route: 042
     Dates: start: 20051102
  2. HYDROXYZINE PAMOATE [Concomitant]
  3. METHYLPREDNISOLONE SODIUM SUCCINATE [Concomitant]
  4. CARBAMAZEPINE [Concomitant]

REACTIONS (4)
  - ANAPHYLACTOID REACTION [None]
  - BLOOD PRESSURE DIASTOLIC DECREASED [None]
  - FLUSHING [None]
  - NASAL CONGESTION [None]
